FAERS Safety Report 9754851 (Version 1)
Quarter: 2013Q4

REPORT INFORMATION
  Report Type: Spontaneous
  Country: US (occurrence: US)
  Receive Date: 20131213
  Receipt Date: 20131213
  Transmission Date: 20140711
  Serious: No
  Sender: FDA-Public Use
  Company Number: US-GLAXOSMITHKLINE-A1007460A

PATIENT
  Age: 32 Year
  Sex: Female

DRUGS (1)
  1. SIMPLY RIGHT CLEAR 21 MG [Suspect]
     Indication: EX-TOBACCO USER
     Dates: start: 20130102

REACTIONS (10)
  - Application site pain [Not Recovered/Not Resolved]
  - Paraesthesia [Not Recovered/Not Resolved]
  - Nausea [Not Recovered/Not Resolved]
  - Gastric disorder [Not Recovered/Not Resolved]
  - Abnormal dreams [Recovered/Resolved]
  - Insomnia [Recovered/Resolved]
  - Restlessness [Recovered/Resolved]
  - Night sweats [Recovered/Resolved]
  - Application site pruritus [Recovered/Resolved]
  - Application site erythema [Recovered/Resolved]
